FAERS Safety Report 15949516 (Version 3)
Quarter: 2019Q3

REPORT INFORMATION
  Report Type: Spontaneous
  Country: US (occurrence: US)
  Receive Date: 20190211
  Receipt Date: 20190802
  Transmission Date: 20191004
  Serious: Yes (Other)
  Sender: FDA-Public Use
  Company Number: US-ASTRAZENECA-2019SE09964

PATIENT
  Age: 26202 Day
  Sex: Male

DRUGS (16)
  1. NEXIUM [Suspect]
     Active Substance: ESOMEPRAZOLE MAGNESIUM
     Dosage: 40.0MG UNKNOWN
     Route: 048
     Dates: start: 20130120
  2. NEXIUM 24HR [Suspect]
     Active Substance: ESOMEPRAZOLE MAGNESIUM
     Route: 048
  3. ULORIC [Concomitant]
     Active Substance: FEBUXOSTAT
  4. PREDNISOLON [Concomitant]
     Active Substance: PREDNISOLONE
  5. LISINOPRIL. [Concomitant]
     Active Substance: LISINOPRIL
  6. CALCIFEROL [Concomitant]
  7. CIPROFLOXACIN. [Concomitant]
     Active Substance: CIPROFLOXACIN
  8. METOPROLOL. [Concomitant]
     Active Substance: METOPROLOL
  9. NEXIUM [Suspect]
     Active Substance: ESOMEPRAZOLE MAGNESIUM
     Route: 048
  10. TRAMADOL. [Concomitant]
     Active Substance: TRAMADOL
  11. INDOMETHACIN. [Concomitant]
     Active Substance: INDOMETHACIN
  12. DICLOFENAC [Concomitant]
     Active Substance: DICLOFENAC
  13. METOPROLOL. [Concomitant]
     Active Substance: METOPROLOL
  14. PROAIR HFA [Concomitant]
     Active Substance: ALBUTEROL SULFATE
  15. SIMVASTATIN. [Concomitant]
     Active Substance: SIMVASTATIN
  16. FERROUS SULFATE. [Concomitant]
     Active Substance: FERROUS SULFATE

REACTIONS (6)
  - Acute kidney injury [Unknown]
  - Nephrogenic anaemia [Unknown]
  - Chronic kidney disease [Unknown]
  - Rebound acid hypersecretion [Unknown]
  - Renal failure [Unknown]
  - Renal injury [Unknown]

NARRATIVE: CASE EVENT DATE: 20160619
